FAERS Safety Report 5598207-3 (Version None)
Quarter: 2008Q1

REPORT INFORMATION
  Report Type: 
  Country: None (occurrence: None)
  Receive Date: 20080122
  Receipt Date: 20080112
  Transmission Date: 20080703
  Serious: Yes (Hospitalization)
  Sender: FDA-Public Use
  Company Number: US-AVENTIS-200810258US

PATIENT
  Age: 74 Year
  Sex: Female

DRUGS (22)
  1. LANTUS [Suspect]
  2. OPTICLIK (INSULIN INJECTION PEN) [Suspect]
  3. LANTUS [Suspect]
     Route: 051
     Dates: start: 20080101
  4. ASPIRIN [Concomitant]
     Dosage: DOSE: UNK
  5. BACTRIM [Concomitant]
     Dosage: DOSE: UNK
  6. COZAAR [Concomitant]
     Dosage: DOSE: UNK
  7. CELEXA [Concomitant]
     Dosage: DOSE: UNK
  8. DIDRONEL                           /00553202/ [Concomitant]
     Dosage: DOSE: UNK
  9. FLUCONAZOLE [Concomitant]
     Dosage: DOSE: UNK
  10. FUROSEMIDE [Concomitant]
     Dosage: DOSE: UNK
  11. FOLIC ACID [Concomitant]
     Dosage: DOSE: UNK
  12. MIGQUIN [Concomitant]
     Dosage: DOSE: UNK
  13. METHOTREXATE [Concomitant]
     Dosage: DOSE: UNK
  14. CELEBREX [Concomitant]
     Dosage: DOSE: UNK
  15. NEURONTIN [Concomitant]
     Dosage: DOSE: UNK
  16. MORPHINE SULFATE [Concomitant]
     Dosage: DOSE: UNK
  17. ACETAMINOPHEN AND OXYCODONE HCL [Concomitant]
     Dosage: DOSE: UNK
  18. PREVACID [Concomitant]
     Dosage: DOSE: UNK
  19. PREDNISONE [Concomitant]
     Dosage: DOSE: UNK
  20. SIMVASTATIN [Concomitant]
     Dosage: DOSE: UNK
  21. VALIUM [Concomitant]
     Dosage: DOSE: UNK
  22. MAGNESIUM CHLORIDE [Concomitant]
     Dosage: DOSE: UNK

REACTIONS (2)
  - BLOOD GLUCOSE INCREASED [None]
  - HOSPITALISATION [None]
